FAERS Safety Report 9281657 (Version 2)
Quarter: 2013Q2

REPORT INFORMATION
  Report Type: Spontaneous
  Country: US (occurrence: US)
  Receive Date: 20130509
  Receipt Date: 20130624
  Transmission Date: 20140414
  Serious: No
  Sender: FDA-Public Use
  Company Number: US-009507513-1305USA002756

PATIENT
  Sex: Female

DRUGS (2)
  1. NASONEX [Suspect]
     Indication: RHINITIS SEASONAL
     Dosage: 2 SPRAYS IN EACH NOSTRIL ONCE DAILY
     Route: 045
  2. PULMICORT FLEXHALER [Concomitant]

REACTIONS (4)
  - Hypertension [Unknown]
  - Nasal discomfort [Unknown]
  - Cough [Unknown]
  - Dysphonia [Unknown]
